FAERS Safety Report 5419048-3 (Version None)
Quarter: 2007Q3

REPORT INFORMATION
  Report Type: 
  Country: None (occurrence: None)
  Receive Date: 20070820
  Receipt Date: 20070815
  Transmission Date: 20080115
  Serious: Yes (Death, Life-Threatening, Hospitalization, Other)
  Sender: FDA-Public Use
  Company Number: PHHO2006VE14148

PATIENT
  Age: 40 Year
  Sex: Female

DRUGS (2)
  1. FORADIL [Suspect]
  2. DIOVAN HCT [Suspect]
     Indication: HYPERTENSION
     Dosage: 160/25 MG
     Dates: end: 20061001

REACTIONS (11)
  - ABDOMINAL DISTENSION [None]
  - ARTERIAL DISORDER [None]
  - ASTHENIA [None]
  - CARDIAC DISORDER [None]
  - DRUG INEFFECTIVE [None]
  - FATIGUE [None]
  - FLATULENCE [None]
  - HYPERTENSIVE CRISIS [None]
  - HYPOTENSION [None]
  - RENAL FAILURE [None]
  - RESPIRATORY DISORDER [None]
